FAERS Safety Report 24258422 (Version 3)
Quarter: 2024Q3

REPORT INFORMATION
  Report Type: Spontaneous
  Country: US (occurrence: US)
  Receive Date: 20240828
  Receipt Date: 20240930
  Transmission Date: 20241017
  Serious: No
  Sender: PFIZER
  Company Number: US-PFIZER INC-202400242372

PATIENT
  Age: 14 Year
  Sex: Male
  Weight: 32.4 kg

DRUGS (2)
  1. GENOTROPIN [Suspect]
     Active Substance: SOMATROPIN
     Indication: Growth hormone deficiency
     Dosage: 1.0 MG PER DAY, 7 DAYS PER WEEK (1 MG SUBCUTANEOUSLY NIGHTLY (AT BEDTIME)
     Route: 058
     Dates: start: 20240805
  2. GENOTROPIN [Suspect]
     Active Substance: SOMATROPIN
     Indication: Hypopituitarism

REACTIONS (1)
  - Rash [Unknown]
